FAERS Safety Report 4851220-3 (Version None)
Quarter: 2005Q4

REPORT INFORMATION
  Report Type: 
  Country: None (occurrence: None)
  Receive Date: 20051208
  Receipt Date: 20051117
  Transmission Date: 20060501
  Serious: Yes (Hospitalization)
  Sender: FDA-Public Use
  Company Number: USA0509109195

PATIENT
  Age: 75 Year
  Sex: Female

DRUGS (5)
  1. FORTEO [Suspect]
     Indication: BONE DENSITY DECREASED
     Dates: start: 20050912, end: 20050920
  2. FORTEO [Suspect]
     Indication: BONE DENSITY DECREASED
     Dates: start: 20050924
  3. FORTEO [Concomitant]
  4. FOSAMAX  /ITA/(ALENDRONATE SODIUM) [Concomitant]
  5. CALCIUM CARBONATE (CALCIUM CARBONATE) TABLET [Concomitant]

REACTIONS (3)
  - HAEMATOMA [None]
  - PHARMACEUTICAL PRODUCT COMPLAINT [None]
  - POST PROCEDURAL HAEMORRHAGE [None]
